FAERS Safety Report 7128657-5 (Version None)
Quarter: 2010Q4

REPORT INFORMATION
  Report Type: 
  Country: None (occurrence: None)
  Receive Date: 20101130
  Receipt Date: 20101117
  Transmission Date: 20110411
  Serious: Yes (Life-Threatening, Other)
  Sender: FDA-Public Use
  Company Number: JP-ROCHE-710673

PATIENT
  Sex: Male

DRUGS (4)
  1. AVASTIN [Suspect]
     Indication: COLON CANCER
     Route: 041
     Dates: start: 20090914
  2. ELPLAT [Concomitant]
     Indication: COLON CANCER METASTATIC
     Dosage: DOSAGE IS UNCERTAIN.
     Route: 041
  3. 5-FU [Concomitant]
     Dosage: DOSAGE IS UNCERTAIN.
     Route: 041
  4. LEVOFOLINATE [Concomitant]
     Route: 041

REACTIONS (6)
  - ABDOMINAL ABSCESS [None]
  - ILEUS [None]
  - LARGE INTESTINE PERFORATION [None]
  - PERITONITIS [None]
  - POSTOPERATIVE WOUND INFECTION [None]
  - RENAL FAILURE ACUTE [None]
